FAERS Safety Report 7306101-2 (Version None)
Quarter: 2011Q1

REPORT INFORMATION
  Report Type: 
  Country: None (occurrence: None)
  Receive Date: 20110222
  Receipt Date: 20110210
  Transmission Date: 20110831
  Serious: Yes (Hospitalization)
  Sender: FDA-Public Use
  Company Number: US-MERCK-1010USA02734

PATIENT
  Age: 29 Year
  Sex: Female
  Weight: 68 kg

DRUGS (7)
  1. PROVENTIL [Concomitant]
     Route: 065
  2. SINGULAIR [Suspect]
     Indication: ASTHMA
     Route: 048
     Dates: start: 20090101
  3. CETIRIZINE HYDROCHLORIDE [Concomitant]
     Route: 065
  4. VITAMINS (UNSPECIFIED) [Concomitant]
     Route: 065
  5. NASACORT [Concomitant]
     Route: 065
     Dates: start: 20060101
  6. CYCLOSPORINE [Concomitant]
     Route: 065
  7. CITALOPRAM [Concomitant]
     Route: 065
     Dates: start: 20060101

REACTIONS (2)
  - ABORTION SPONTANEOUS [None]
  - DRUG EXPOSURE DURING PREGNANCY [None]
